FAERS Safety Report 10170161 (Version 1)
Quarter: 2014Q2

REPORT INFORMATION
  Report Type: Spontaneous
  Country: CN (occurrence: CN)
  Receive Date: 20140513
  Receipt Date: 20140513
  Transmission Date: 20141212
  Serious: Yes (Other)
  Sender: FDA-Public Use
  Company Number: CN-BAXTER-2014BAX023156

PATIENT
  Age: 64 Year
  Sex: Female
  Weight: 51 kg

DRUGS (1)
  1. 20% MANNITOL INJECTION [Suspect]
     Indication: TIBIA FRACTURE
     Route: 041
     Dates: start: 20130510, end: 20130510

REACTIONS (2)
  - Convulsion [Recovered/Resolved]
  - Chills [Recovered/Resolved]
